FAERS Safety Report 18438230 (Version 1)
Quarter: 2020Q4

REPORT INFORMATION
  Report Type: Spontaneous
  Country: US (occurrence: US)
  Receive Date: 20201028
  Receipt Date: 20201028
  Transmission Date: 20210114
  Serious: No
  Sender: FDA-Public Use
  Company Number: US-GILEAD-2020-0501890

PATIENT
  Age: 61 Year
  Sex: Female

DRUGS (8)
  1. BIKTARVY [Suspect]
     Active Substance: BICTEGRAVIR SODIUM\EMTRICITABINE\TENOFOVIR ALAFENAMIDE FUMARATE
     Indication: HIV INFECTION
     Dosage: 1 DOSAGE FORM, QD
     Route: 048
     Dates: start: 202008
  2. LISINOPRIL. [Concomitant]
     Active Substance: LISINOPRIL
  3. ALENDRONATE SODIUM. [Concomitant]
     Active Substance: ALENDRONATE SODIUM
  4. FISH OIL [Concomitant]
     Active Substance: FISH OIL
  5. VITAMIN B COMPLEX W C [ASCORBIC ACID;VITAMIN B COMPLEX] [Concomitant]
  6. PROLIA [Concomitant]
     Active Substance: DENOSUMAB
  7. SYNTHROID [Concomitant]
     Active Substance: LEVOTHYROXINE SODIUM
  8. OSCAL [CALCITRIOL] [Concomitant]

REACTIONS (6)
  - Pain [Not Recovered/Not Resolved]
  - Pain in extremity [Not Recovered/Not Resolved]
  - Arthralgia [Not Recovered/Not Resolved]
  - Asthenia [Not Recovered/Not Resolved]
  - Head discomfort [Unknown]
  - Gait inability [Not Recovered/Not Resolved]

NARRATIVE: CASE EVENT DATE: 202010
